FAERS Safety Report 6086192-X (Version None)
Quarter: 2009Q1

REPORT INFORMATION
  Report Type: 
  Country: None (occurrence: None)
  Receive Date: 20090217
  Receipt Date: 20090217
  Transmission Date: 20090719
  Serious: Yes (Other)
  Sender: FDA-Public Use
  Company Number: None

PATIENT
  Age: 48 Year
  Sex: Male
  Weight: 72.5755 kg

DRUGS (2)
  1. REQUIP XL [Suspect]
     Indication: PARKINSON'S DISEASE
     Dosage: 1 TABLET TWICE DAILY
     Dates: start: 20081001, end: 20081214
  2. REQUIP [Suspect]
     Dosage: 1 TABLET TWICE DAILY
     Dates: start: 20081001, end: 20081214

REACTIONS (5)
  - BACK PAIN [None]
  - COMPULSIVE SHOPPING [None]
  - INSOMNIA [None]
  - MUSCULOSKELETAL PAIN [None]
  - PATHOLOGICAL GAMBLING [None]
